FAERS Safety Report 14966352 (Version 1)
Quarter: 2018Q2

REPORT INFORMATION
  Report Type: Report from Study
  Country: None (occurrence: BR)
  Receive Date: 20180604
  Receipt Date: 20180604
  Transmission Date: 20180711
  Serious: Yes (Other)
  Sender: FDA-Public Use
  Company Number: BR-ABBVIE-18K-020-2372258-00

PATIENT
  Age: 36 Year
  Sex: Female

DRUGS (3)
  1. HUMIRA [Suspect]
     Active Substance: ADALIMUMAB
     Indication: ANKYLOSING SPONDYLITIS
     Dosage: DOSE DECREASED
     Route: 058
  2. HUMIRA [Suspect]
     Active Substance: ADALIMUMAB
     Route: 058
     Dates: end: 201605
  3. BETASERC [Concomitant]
     Active Substance: BETAHISTINE
     Indication: MENIERE^S DISEASE

REACTIONS (8)
  - Uterine contractions during pregnancy [Unknown]
  - Arthralgia [Not Recovered/Not Resolved]
  - Postpartum disorder [Unknown]
  - Inflammation [Recovered/Resolved]
  - Exposure during pregnancy [Unknown]
  - Arthritis [Recovered/Resolved]
  - Enthesopathy [Unknown]
  - Live birth [Unknown]

NARRATIVE: CASE EVENT DATE: 2016
